FAERS Safety Report 4928323-8 (Version None)
Quarter: 2006Q1

REPORT INFORMATION
  Report Type: 
  Country: None (occurrence: None)
  Receive Date: 20060228
  Receipt Date: 20051003
  Transmission Date: 20060701
  Serious: Yes (Hospitalization, Disabling, Other)
  Sender: FDA-Public Use
  Company Number: US-MERCK-0510USA02664

PATIENT
  Age: 41 Year
  Sex: Female
  Weight: 68 kg

DRUGS (20)
  1. VIOXX [Suspect]
     Indication: RHEUMATOID ARTHRITIS
     Route: 048
     Dates: start: 20010125, end: 20030304
  2. DARVOCET-N 50 [Concomitant]
     Route: 048
  3. VICODIN [Concomitant]
     Route: 048
  4. QUININE [Concomitant]
     Route: 048
  5. PROMETHAZINE [Concomitant]
     Route: 048
  6. METFORMIN [Concomitant]
     Route: 048
  7. NEURONTIN [Concomitant]
     Route: 048
  8. PLAVIX [Concomitant]
     Route: 065
  9. LISINOPRIL-BC [Concomitant]
     Route: 048
  10. BUSPIRONE HYDROCHLORIDE [Concomitant]
     Route: 048
  11. ZOCOR [Concomitant]
     Route: 048
  12. ENBREL [Concomitant]
     Route: 048
  13. PAXIL [Concomitant]
     Route: 048
  14. METHOTREXATE [Concomitant]
     Route: 065
     Dates: start: 20010201
  15. REMICADE [Concomitant]
     Route: 065
  16. CLIMARA [Concomitant]
     Route: 061
     Dates: start: 20010205
  17. HYDROCHLOROTHIAZIDE TABLETS (USP 23) [Concomitant]
     Route: 065
     Dates: start: 20010205
  18. HYDROCHLOROTHIAZIDE TABLETS (USP 23) [Concomitant]
     Route: 048
     Dates: start: 20010205
  19. ASPIRIN [Concomitant]
     Route: 048
     Dates: start: 20010211
  20. ZESTORETIC [Concomitant]
     Route: 048
     Dates: start: 20010205

REACTIONS (18)
  - ADVERSE DRUG REACTION [None]
  - ARTHRITIS [None]
  - CARPAL TUNNEL SYNDROME [None]
  - CEREBROVASCULAR ACCIDENT [None]
  - CONVULSION [None]
  - COUGH [None]
  - DEPRESSION [None]
  - HYPERLIPIDAEMIA [None]
  - HYPERTENSION [None]
  - IMMUNODEFICIENCY [None]
  - MUSCLE SPASMS [None]
  - NAUSEA [None]
  - PNEUMONIA [None]
  - PSORIASIS [None]
  - PYREXIA [None]
  - SINUS DISORDER [None]
  - SINUS OPERATION [None]
  - TRANSIENT ISCHAEMIC ATTACK [None]
